FAERS Safety Report 11820035 (Version 1)
Quarter: 2015Q4

REPORT INFORMATION
  Report Type: Spontaneous
  Country: US (occurrence: US)
  Receive Date: 20151210
  Receipt Date: 20151210
  Transmission Date: 20160305
  Serious: Yes (Other)
  Sender: FDA-Public Use
  Company Number: US-009507513-1512USA005137

PATIENT
  Age: 79 Year
  Sex: Female

DRUGS (4)
  1. HEXADROL [Suspect]
     Active Substance: DEXAMETHASONE
     Dosage: PREMEDICATION DRUG
  2. FAMOTIDINE. [Suspect]
     Active Substance: FAMOTIDINE
     Dosage: PREMEDICATION DRUG
  3. ONDANSETRON [Suspect]
     Active Substance: ONDANSETRON
     Dosage: PREMEDICATION DRUG
  4. TAXOL [Concomitant]
     Active Substance: PACLITAXEL
     Indication: OVARIAN CANCER
     Dosage: UNK

REACTIONS (1)
  - Anaphylactic reaction [Unknown]
